FAERS Safety Report 11317456 (Version 1)
Quarter: 2015Q3

REPORT INFORMATION
  Report Type: Spontaneous
  Country: US (occurrence: None)
  Receive Date: 20150727
  Receipt Date: 20150727
  Transmission Date: 20151125
  Serious: No
  Sender: FDA-Public Use
  Company Number: None

PATIENT
  Age: 55 Year
  Sex: Female
  Weight: 77.57 kg

DRUGS (1)
  1. CONTRAVE [Suspect]
     Active Substance: BUPROPION HYDROCHLORIDE\NALTREXONE HYDROCHLORIDE
     Indication: WEIGHT CONTROL
     Dosage: 2 PILLS
     Route: 048
     Dates: start: 20150617

REACTIONS (5)
  - Headache [None]
  - Palpitations [None]
  - Hypertension [None]
  - Tinnitus [None]
  - Abnormal dreams [None]

NARRATIVE: CASE EVENT DATE: 20150722
